FAERS Safety Report 5569979-9 (Version None)
Quarter: 2007Q4

REPORT INFORMATION
  Report Type: 
  Country: None (occurrence: None)
  Receive Date: 20071220
  Receipt Date: 20071212
  Transmission Date: 20080405
  Serious: Yes (Hospitalization, Other)
  Sender: FDA-Public Use
  Company Number: US-PFIZER INC-2007105662

PATIENT
  Sex: Male

DRUGS (1)
  1. CHANTIX [Suspect]
     Indication: SMOKING CESSATION THERAPY

REACTIONS (11)
  - ABNORMAL BEHAVIOUR [None]
  - ANGER [None]
  - ANOREXIA [None]
  - BLINDNESS [None]
  - DEAFNESS [None]
  - DRUG TOXICITY [None]
  - EYE DISCHARGE [None]
  - HOMICIDAL IDEATION [None]
  - MALAISE [None]
  - PERSONALITY CHANGE [None]
  - SLEEP DISORDER [None]
